FAERS Safety Report 12840626 (Version 1)
Quarter: 2016Q4

REPORT INFORMATION
  Report Type: Spontaneous
  Country: US (occurrence: US)
  Receive Date: 20161012
  Receipt Date: 20161012
  Transmission Date: 20170207
  Serious: No
  Sender: FDA-Public Use
  Company Number: US-SHIRE-US201614344

PATIENT
  Age: 56 Year
  Sex: Male
  Weight: 77.98 kg

DRUGS (3)
  1. XIIDRA [Suspect]
     Active Substance: LIFITEGRAST
     Indication: DRY EYE
     Dosage: 1 GTT (BOTH EYES), 2X/DAY:BID
     Route: 047
     Dates: start: 201609, end: 20161001
  2. METFORMIN [Concomitant]
     Active Substance: METFORMIN HYDROCHLORIDE
     Indication: TYPE 2 DIABETES MELLITUS
     Dosage: 500 MG, 1X/DAY:QD
     Route: 048
     Dates: start: 2010
  3. LYPRESSIN [Concomitant]
     Active Substance: LYPRESSIN
     Indication: TYPE 2 DIABETES MELLITUS
     Dosage: UNK, UNKNOWN
     Route: 048
     Dates: start: 2010

REACTIONS (1)
  - Ocular hyperaemia [Recovered/Resolved]

NARRATIVE: CASE EVENT DATE: 201609
